FAERS Safety Report 19474520 (Version 2)
Quarter: 2023Q4

REPORT INFORMATION
  Report Type: Report from Study
  Country: US (occurrence: US)
  Receive Date: 20210629
  Receipt Date: 20231220
  Transmission Date: 20240109
  Serious: Yes (Death, Other)
  Sender: FDA-Public Use
  Company Number: US-SHIRE-US201830853

PATIENT
  Sex: Female

DRUGS (1)
  1. HUMAN IMMUNOGLOBULIN G\HYALURONIDASE RECOMBINANT HUMAN [Suspect]
     Active Substance: HUMAN IMMUNOGLOBULIN G\HYALURONIDASE (HUMAN RECOMBINANT)
     Indication: Primary immunodeficiency syndrome
     Dosage: 50 GRAM, MONTHLY
     Route: 058

REACTIONS (7)
  - Death [Fatal]
  - Bronchitis [Recovered/Resolved]
  - Thyroid cancer [Unknown]
  - Seasonal allergy [Unknown]
  - Fibromyalgia [Unknown]
  - Infusion site haemorrhage [Unknown]
  - Fatigue [Unknown]
